FAERS Safety Report 16972675 (Version 2)
Quarter: 2019Q4

REPORT INFORMATION
  Report Type: Spontaneous
  Country: US (occurrence: US)
  Receive Date: 20191030
  Receipt Date: 20191120
  Transmission Date: 20200122
  Serious: Yes (Other)
  Sender: FDA-Public Use
  Company Number: US-ASTRAZENECA-2019SF51263

PATIENT
  Age: 57 Year
  Sex: Female
  Weight: 88.5 kg

DRUGS (18)
  1. SIMVASTATIN. [Concomitant]
     Active Substance: SIMVASTATIN
  2. ALPRAZOLAM. [Concomitant]
     Active Substance: ALPRAZOLAM
  3. NEXIUM [Suspect]
     Active Substance: ESOMEPRAZOLE MAGNESIUM
     Indication: GASTROOESOPHAGEAL REFLUX DISEASE
     Route: 048
     Dates: start: 2000, end: 2014
  4. NEXIUM [Suspect]
     Active Substance: ESOMEPRAZOLE MAGNESIUM
     Indication: GASTROOESOPHAGEAL REFLUX DISEASE
     Route: 048
     Dates: start: 20120117
  5. CALCITRIOL. [Concomitant]
     Active Substance: CALCITRIOL
  6. NEXIUM [Suspect]
     Active Substance: ESOMEPRAZOLE MAGNESIUM
     Indication: GASTROOESOPHAGEAL REFLUX DISEASE
     Route: 048
     Dates: start: 2000, end: 2013
  7. OXYCODONE [Concomitant]
     Active Substance: OXYCODONE
  8. ENDOCET [Concomitant]
     Active Substance: ACETAMINOPHEN\OXYCODONE HYDROCHLORIDE
  9. GABAPENTIN. [Concomitant]
     Active Substance: GABAPENTIN
  10. ASPIRIN. [Concomitant]
     Active Substance: ASPIRIN
  11. AMOXICILLIN. [Concomitant]
     Active Substance: AMOXICILLIN
  12. PREDNISONE. [Concomitant]
     Active Substance: PREDNISONE
  13. FUROSEMIDE. [Concomitant]
     Active Substance: FUROSEMIDE
  14. VENTOLIN [Concomitant]
     Active Substance: ALBUTEROL SULFATE
  15. AZITHROMYCIN ANHYDROUS. [Concomitant]
     Active Substance: AZITHROMYCIN ANHYDROUS
  16. NIFEDIPINE. [Concomitant]
     Active Substance: NIFEDIPINE
  17. GABAPENTIN. [Concomitant]
     Active Substance: GABAPENTIN
  18. ALLOPURINOL. [Concomitant]
     Active Substance: ALLOPURINOL

REACTIONS (3)
  - Chronic kidney disease [Unknown]
  - End stage renal disease [Unknown]
  - Renal failure [Not Recovered/Not Resolved]

NARRATIVE: CASE EVENT DATE: 2012
